FAERS Safety Report 11856901 (Version 1)
Quarter: 2015Q4

REPORT INFORMATION
  Report Type: Spontaneous
  Country: BE (occurrence: BE)
  Receive Date: 20151221
  Receipt Date: 20151221
  Transmission Date: 20160305
  Serious: No
  Sender: FDA-Public Use
  Company Number: BE-JNJFOC-20151214176

PATIENT
  Age: 82 Year
  Sex: Male

DRUGS (1)
  1. DUROGESIC [Suspect]
     Active Substance: FENTANYL
     Indication: NEURALGIA
     Route: 062

REACTIONS (3)
  - Drug administration error [Unknown]
  - Wrong technique in product usage process [Unknown]
  - Pain [Unknown]
